FAERS Safety Report 12749685 (Version 1)
Quarter: 2016Q3

REPORT INFORMATION
  Report Type: Spontaneous
  Country: US (occurrence: US)
  Receive Date: 20160916
  Receipt Date: 20160916
  Transmission Date: 20161109
  Serious: No
  Sender: FDA-Public Use
  Company Number: US-BRISTOL-MYERS SQUIBB COMPANY-BMS-2016-071258

PATIENT
  Sex: Female
  Weight: 104.31 kg

DRUGS (1)
  1. ELIQUIS [Suspect]
     Active Substance: APIXABAN
     Indication: THROMBOSIS
     Dosage: UNK (6 DOSES)
     Route: 065
     Dates: start: 20160826

REACTIONS (1)
  - Amenorrhoea [Unknown]
